FAERS Safety Report 14759842 (Version 2)
Quarter: 2018Q2

REPORT INFORMATION
  Report Type: Spontaneous
  Country: US (occurrence: US)
  Receive Date: 20180413
  Receipt Date: 20180502
  Transmission Date: 20180711
  Serious: No
  Sender: FDA-Public Use
  Company Number: US-MYLANLABS-2018M1022985

PATIENT
  Sex: Male

DRUGS (1)
  1. GLATIRAMER [Suspect]
     Active Substance: GLATIRAMER
     Indication: PRODUCT USED FOR UNKNOWN INDICATION
     Dosage: UNK
     Route: 058

REACTIONS (7)
  - Injection site urticaria [Unknown]
  - Swelling [Unknown]
  - Headache [Unknown]
  - Pruritus [Unknown]
  - Pain in extremity [Unknown]
  - Drug dose omission [Unknown]
  - Pyrexia [Unknown]

NARRATIVE: CASE EVENT DATE: 20180215
